FAERS Safety Report 17447102 (Version 6)
Quarter: 2022Q3

REPORT INFORMATION
  Report Type: Spontaneous
  Country: US (occurrence: US)
  Receive Date: 20200221
  Receipt Date: 20220801
  Transmission Date: 20221027
  Serious: Yes (Hospitalization, Other)
  Sender: FDA-Public Use
  Company Number: US-TEVA-2020-US-1188372

PATIENT
  Age: 81 Year
  Sex: Female
  Weight: 102 kg

DRUGS (41)
  1. HYDROCHLOROTHIAZIDE\VALSARTAN [Suspect]
     Active Substance: HYDROCHLOROTHIAZIDE\VALSARTAN
     Indication: Hypertension
     Dosage: 1 DOSAGE FORMS DAILY; VALSARTAN 160 MG, HYDROCHLOROTHIAZIDE 12.5 MG
     Route: 048
     Dates: start: 20131016, end: 20140114
  2. HYDROCHLOROTHIAZIDE\VALSARTAN [Suspect]
     Active Substance: HYDROCHLOROTHIAZIDE\VALSARTAN
     Dosage: 1 DOSAGE FORMS DAILY; VALSARTAN 160 MG, HYDROCHLOROTHIAZIDE 12.5 MG
     Route: 048
     Dates: start: 20140619, end: 20140917
  3. HYDROCHLOROTHIAZIDE\VALSARTAN [Suspect]
     Active Substance: HYDROCHLOROTHIAZIDE\VALSARTAN
     Dosage: 1 DOSAGE FORMS DAILY; VALSARTAN 160 MG, HYDROCHLOROTHIAZIDE 12.5 MG
     Route: 048
     Dates: start: 20141201, end: 20150824
  4. HYDROCHLOROTHIAZIDE\VALSARTAN [Suspect]
     Active Substance: HYDROCHLOROTHIAZIDE\VALSARTAN
     Dosage: 1 DOSAGE FORMS DAILY; VALSARTAN 160 MG, HYDROCHLOROTHIAZIDE 12.5 MG
     Route: 048
     Dates: start: 20151102, end: 20160131
  5. HYDROCHLOROTHIAZIDE\VALSARTAN [Suspect]
     Active Substance: HYDROCHLOROTHIAZIDE\VALSARTAN
     Dosage: 1 DOSAGE FORMS DAILY; VALSARTAN 160 MG, HYDROCHLOROTHIAZIDE 12.5 MG
     Route: 048
     Dates: start: 20170922, end: 20181010
  6. DIOVAN [Suspect]
     Active Substance: VALSARTAN
     Indication: Hypertension
     Route: 048
  7. DIOVAN HCT [Suspect]
     Active Substance: HYDROCHLOROTHIAZIDE\VALSARTAN
     Indication: Hypertension
     Dosage: 12.5 MG HYDROCHLOROTHIAZIDE, 160 MG VALSARTAN
     Route: 048
  8. FLUTICASONE PROPIONATE [Concomitant]
     Active Substance: FLUTICASONE PROPIONATE
     Indication: Hypersensitivity
     Dosage: 50 MICROGRAM DAILY; SPRAY
     Route: 065
  9. AMLODIPINE BESYLATE [Concomitant]
     Active Substance: AMLODIPINE BESYLATE
     Indication: Hypertension
     Dosage: 5 MILLIGRAM DAILY;
     Route: 048
     Dates: start: 2005
  10. AMLODIPINE BESYLATE [Concomitant]
     Active Substance: AMLODIPINE BESYLATE
     Dosage: 5 MILLIGRAM DAILY;
     Route: 048
     Dates: start: 20180125, end: 20180724
  11. BYSTOLIC [Concomitant]
     Active Substance: NEBIVOLOL HYDROCHLORIDE
     Indication: Hypertension
     Route: 048
     Dates: start: 2005
  12. BYSTOLIC [Concomitant]
     Active Substance: NEBIVOLOL HYDROCHLORIDE
     Route: 048
     Dates: start: 20180215, end: 20180819
  13. BAYER ASPIRIN [Concomitant]
     Active Substance: ASPIRIN
     Indication: Hypertension
     Route: 065
     Dates: start: 2005
  14. TOLTERODINE TARTRATE [Concomitant]
     Active Substance: TOLTERODINE TARTRATE
     Indication: Hypertension
     Route: 048
     Dates: start: 2005
  15. VITAMIN B12 [Concomitant]
     Active Substance: CYANOCOBALAMIN
     Indication: Vitamin B complex deficiency
     Route: 048
     Dates: start: 2005
  16. POTASSIUM [Concomitant]
     Active Substance: POTASSIUM
     Indication: Hypertension
     Route: 065
  17. HYDROCHLOROTHIAZIDE [Concomitant]
     Active Substance: HYDROCHLOROTHIAZIDE
     Indication: Hypertension
     Route: 065
     Dates: start: 202001
  18. TYLENOL [Concomitant]
     Active Substance: ACETAMINOPHEN
     Indication: Pain
     Route: 065
  19. NORVASC [Concomitant]
     Active Substance: AMLODIPINE BESYLATE
     Indication: Product used for unknown indication
     Route: 048
  20. ECOTRIN [Concomitant]
     Active Substance: ASPIRIN
     Indication: Product used for unknown indication
     Route: 048
  21. Spectravite ultra womens SR [Concomitant]
     Indication: Product used for unknown indication
     Dosage: 8 MG IRON - 400 MCG-300 MCG
     Route: 065
  22. ULTRAM [Concomitant]
     Active Substance: TRAMADOL HYDROCHLORIDE
     Indication: Pain
     Dosage: AS NEEDED
     Route: 048
  23. ASPIRIN [Concomitant]
     Active Substance: ASPIRIN
     Indication: Product used for unknown indication
     Route: 048
  24. ASPIRIN [Concomitant]
     Active Substance: ASPIRIN
     Dosage: PO ONCE A DAY
     Route: 048
  25. B-complex with vitamin C [Concomitant]
     Indication: Product used for unknown indication
     Route: 065
  26. FLEXERIL [Concomitant]
     Active Substance: CYCLOBENZAPRINE HYDROCHLORIDE
     Indication: Muscle spasms
     Dosage: AS NEEDED
     Route: 048
  27. FLONASE [Concomitant]
     Active Substance: FLUTICASONE PROPIONATE
     Indication: Hypersensitivity
     Dosage: SPRAY 2 SPRAY INTO BOTH NOSTRILS ONCE A DAY
     Route: 045
  28. NORCO [Concomitant]
     Active Substance: ACETAMINOPHEN\HYDROCODONE BITARTRATE
     Indication: Pain
     Dosage: ACETAMINOPHEN 325 MG, HYDROCODONE 5 MG TAKE 1 TABLET BY MOUTH EVERY SIX HOURS AS NEEDED.
     Route: 048
  29. PAMELOR [Concomitant]
     Active Substance: NORTRIPTYLINE HYDROCHLORIDE
     Indication: Product used for unknown indication
     Route: 065
  30. ZOFRAN [Concomitant]
     Active Substance: ONDANSETRON HYDROCHLORIDE
     Indication: Nausea
     Dosage: 12 MILLIGRAM DAILY; AS NEEDED
     Route: 048
  31. PERCOCET [Concomitant]
     Active Substance: ACETAMINOPHEN\OXYCODONE HYDROCHLORIDE
     Indication: Pain
     Dosage: ACETAMINOPHEN 325 MG, OXYCODONE 5 MG AS NEEDED
     Route: 048
  32. LYRICA [Concomitant]
     Active Substance: PREGABALIN
     Indication: Product used for unknown indication
     Dosage: 16.6667 MILLIGRAM DAILY;
     Route: 048
  33. CARAFATE [Concomitant]
     Active Substance: SUCRALFATE
     Indication: Product used for unknown indication
     Dosage: (1 G TOTAL) SUSPENSION
     Route: 048
  34. DETROL LA [Concomitant]
     Active Substance: TOLTERODINE TARTRATE
     Indication: Product used for unknown indication
     Route: 048
  35. DETROL LA [Concomitant]
     Active Substance: TOLTERODINE TARTRATE
     Route: 048
     Dates: start: 20180125, end: 20180724
  36. Ferric carboxymaltose in sodium chloride [Concomitant]
     Indication: Product used for unknown indication
     Dosage: 750 MG IN SODIUM CHLORIDE (NS) 0.9 % 250 ML IVPB, ONCE
     Route: 042
     Dates: end: 20171003
  37. Vitamin B12 Folic acid [Concomitant]
     Indication: Product used for unknown indication
     Dosage: VITAMIN B12 400 MCG, FOLIC ACID 500 MCG
     Route: 048
  38. ASPIRIN [Concomitant]
     Active Substance: ASPIRIN
     Indication: Product used for unknown indication
     Dosage: 81 MILLIGRAM DAILY;
     Route: 048
     Dates: start: 20141118
  39. FOSINOPRIL [Concomitant]
     Active Substance: FOSINOPRIL
     Indication: Product used for unknown indication
     Dosage: QD, 1 TAB EVERYDAY BY MOUTH
     Route: 048
     Dates: start: 20081121
  40. NIFEDIAC CC [Concomitant]
     Active Substance: NIFEDIPINE
     Indication: Product used for unknown indication
     Dosage: 1 TAB EVERYDAY
     Dates: start: 20081121
  41. TESSALON [Concomitant]
     Active Substance: BENZONATATE
     Indication: Product used for unknown indication
     Route: 048

REACTIONS (3)
  - Colon cancer stage II [Recovered/Resolved]
  - Bronchioloalveolar carcinoma [Unknown]
  - Constipation [Unknown]

NARRATIVE: CASE EVENT DATE: 20180119
